FAERS Safety Report 7987083-7 (Version None)
Quarter: 2011Q4

REPORT INFORMATION
  Report Type: 
  Country: None (occurrence: None)
  Receive Date: 20111216
  Receipt Date: 20110929
  Transmission Date: 20120403
  Serious: No
  Sender: FDA-Public Use
  Company Number: US-BRISTOL-MYERS SQUIBB COMPANY-16115313

PATIENT
  Age: 45 Year
  Sex: Female

DRUGS (3)
  1. ABILIFY [Suspect]
  2. TRAZODONE HCL [Concomitant]
  3. PAXIL [Concomitant]

REACTIONS (1)
  - SOMNOLENCE [None]
